FAERS Safety Report 7915088-0 (Version None)
Quarter: 2011Q4

REPORT INFORMATION
  Report Type: 
  Country: None (occurrence: None)
  Receive Date: 20111115
  Receipt Date: 20111108
  Transmission Date: 20120403
  Serious: Yes (Hospitalization, Disabling)
  Sender: FDA-Public Use
  Company Number: DE-MERCK-1109DEU00033

PATIENT
  Age: 88 Year
  Sex: Female
  Weight: 80 kg

DRUGS (9)
  1. LERCANIDIPINE HYDROCHLORIDE [Concomitant]
     Indication: HYPERTENSION
     Route: 048
  2. RAMIPRIL [Concomitant]
     Indication: HYPERTENSION
     Route: 048
  3. LEVOTHYROXINE SODIUM [Concomitant]
     Indication: HYPOTHYROIDISM
     Route: 048
  4. BISOPROLOL FUMARATE [Concomitant]
     Indication: HYPERTENSION
     Route: 048
  5. OMEPRAZOLE [Concomitant]
     Route: 048
  6. JANUMET [Suspect]
     Indication: TYPE 2 DIABETES MELLITUS
     Route: 048
     Dates: start: 20110617, end: 20110906
  7. ASPIRIN [Concomitant]
     Indication: CEREBROVASCULAR ACCIDENT
     Route: 048
  8. CALCIUM CARBONATE AND CHOLECALCIFEROL [Concomitant]
     Route: 065
  9. HYDROCHLOROTHIAZIDE [Concomitant]
     Indication: HYPERTENSION
     Route: 048

REACTIONS (6)
  - ULTRASOUND KIDNEY ABNORMAL [None]
  - RENAL CYST HAEMORRHAGE [None]
  - PEMPHIGOID [None]
  - LYMPHOMA [None]
  - VITAMIN D DEFICIENCY [None]
  - B-LYMPHOCYTE COUNT INCREASED [None]
